FAERS Safety Report 9932347 (Version 1)
Quarter: 2014Q1

REPORT INFORMATION
  Report Type: Spontaneous
  Country: US (occurrence: US)
  Receive Date: 20140228
  Receipt Date: 20140228
  Transmission Date: 20141002
  Serious: No
  Sender: FDA-Public Use
  Company Number: US-GLAXOSMITHKLINE-A1008377A

PATIENT
  Age: 43 Year
  Sex: Female

DRUGS (2)
  1. LAMICTAL [Suspect]
     Indication: DEPRESSION
     Dosage: 300MG PER DAY
     Route: 048
     Dates: end: 20130110
  2. NO CONCURRENT MEDICATION [Concomitant]

REACTIONS (6)
  - Dizziness [Unknown]
  - Derealisation [Unknown]
  - Disorientation [Unknown]
  - Nausea [Unknown]
  - Feeling abnormal [Unknown]
  - Disturbance in attention [Unknown]
